FAERS Safety Report 4763292-5 (Version None)
Quarter: 2005Q3

REPORT INFORMATION
  Report Type: 
  Country: None (occurrence: None)
  Receive Date: 20050902
  Receipt Date: 20050819
  Transmission Date: 20060218
  Serious: Yes (Other)
  Sender: FDA-Public Use
  Company Number: 2005P1000263

PATIENT
  Age: 58 Year
  Sex: Male

DRUGS (5)
  1. RETEVASE [Suspect]
     Indication: ACUTE MYOCARDIAL INFARCTION
     Dosage: IV
     Route: 042
     Dates: start: 20050225, end: 20050225
  2. ABCIXIMAB (ABCIXIMAB) [Concomitant]
     Indication: ACUTE MYOCARDIAL INFARCTION
     Dosage: IV
     Route: 042
     Dates: start: 20050225
  3. CLOPIDOGREL [Concomitant]
  4. BISOPROLOL [Concomitant]
  5. FUROSEMIDE [Concomitant]

REACTIONS (1)
  - INTRACARDIAC THROMBUS [None]
